FAERS Safety Report 22252714 (Version 1)
Quarter: 2023Q2

REPORT INFORMATION
  Report Type: Spontaneous
  Country: US (occurrence: None)
  Receive Date: 20230426
  Receipt Date: 20230426
  Transmission Date: 20230721
  Serious: No
  Sender: FDA-Public Use
  Company Number: US-Ultragenyx Pharmaceutical Inc.-US-UGNX-22-00803

PATIENT
  Sex: Male
  Weight: 95.12 kg

DRUGS (5)
  1. DOJOLVI [Suspect]
     Active Substance: TRIHEPTANOIN
     Indication: Very long-chain acyl-coenzyme A dehydrogenase deficiency
     Dosage: WITH MEALS/SNACKS AND MIX INTO APPLESAUCE
     Route: 048
     Dates: start: 20221022
  2. DOJOLVI [Suspect]
     Active Substance: TRIHEPTANOIN
     Dosage: 10 ML THOROUGHLY WITH FOOD OR DRINK THREE TIMES DAILY INCLUDING AT MEALTIMES OR SNACKS. INCREASE EAC
     Route: 048
  3. VITAMIN B-2 [Concomitant]
     Indication: Product used for unknown indication
  4. COENZYME Q10 [Concomitant]
     Active Substance: DIETARY SUPPLEMENT\UBIDECARENONE
     Indication: Product used for unknown indication
  5. CARNITOR [Concomitant]
     Active Substance: LEVOCARNITINE
     Indication: Product used for unknown indication

REACTIONS (3)
  - Drug intolerance [Unknown]
  - Abdominal discomfort [Recovering/Resolving]
  - Abdominal pain [Unknown]
